FAERS Safety Report 4499733-0 (Version None)
Quarter: 2004Q4

REPORT INFORMATION
  Report Type: 
  Country: None (occurrence: None)
  Receive Date: 20041112
  Receipt Date: 20041102
  Transmission Date: 20050328
  Serious: Yes (Hospitalization)
  Sender: FDA-Public Use
  Company Number: 200414149FR

PATIENT
  Age: 82 Year
  Sex: Female

DRUGS (6)
  1. LASILIX FAIBLE [Suspect]
     Indication: ESSENTIAL HYPERTENSION
     Route: 048
     Dates: end: 20040722
  2. DEROXAT [Suspect]
     Indication: DYSTHYMIC DISORDER
     Route: 048
     Dates: end: 20040722
  3. IMOVANE [Suspect]
     Route: 048
     Dates: end: 20040722
  4. ARICEPT [Concomitant]
     Indication: DEMENTIA ALZHEIMER'S TYPE
     Route: 048
     Dates: end: 20040724
  5. COVERSYL 2 MG [Concomitant]
     Indication: ESSENTIAL HYPERTENSION
     Route: 048
  6. RISPERDAL [Concomitant]
     Indication: PSYCHOTIC DISORDER
     Route: 048
     Dates: end: 20040722

REACTIONS (4)
  - CONFUSIONAL STATE [None]
  - DEMENTIA [None]
  - HYPONATRAEMIA [None]
  - SOMNOLENCE [None]
